FAERS Safety Report 5915111-9 (Version None)
Quarter: 2008Q4

REPORT INFORMATION
  Report Type: 
  Country: None (occurrence: None)
  Receive Date: 20081010
  Receipt Date: 20081007
  Transmission Date: 20090506
  Serious: Yes (Other)
  Sender: FDA-Public Use
  Company Number: B0540209A

PATIENT
  Age: 71 Year
  Sex: Female

DRUGS (9)
  1. ZANTAC [Suspect]
     Indication: GASTRITIS
     Dosage: 150MG PER DAY
     Route: 048
  2. ASPIRIN [Concomitant]
     Route: 048
  3. MEVAN [Concomitant]
     Route: 048
  4. SERMION [Concomitant]
     Route: 048
  5. NEUROTROPIN [Concomitant]
     Route: 065
     Dates: start: 20080801
  6. ALFASULY [Concomitant]
     Route: 048
     Dates: start: 20080801
  7. OSTELUC [Concomitant]
     Route: 048
     Dates: start: 20080401, end: 20080501
  8. BONALON [Concomitant]
     Route: 048
     Dates: start: 20080401, end: 20080501
  9. CHINESE MEDICINE [Concomitant]
     Route: 048
     Dates: start: 20080401, end: 20080501

REACTIONS (1)
  - AGGRESSION [None]
